FAERS Safety Report 23988507 (Version 1)
Quarter: 2024Q2

REPORT INFORMATION
  Report Type: Report from Study
  Country: GB (occurrence: GB)
  Receive Date: 20240619
  Receipt Date: 20240619
  Transmission Date: 20240716
  Serious: Yes (Other)
  Sender: FDA-Public Use
  Company Number: GB-SAMSUNG BIOEPIS-SB-2024-13586

PATIENT
  Age: 63 Year
  Sex: Female

DRUGS (1)
  1. IMRALDI [Suspect]
     Active Substance: ADALIMUMAB
     Indication: Rheumatoid arthritis
     Dosage: 40 MG/ 0.8 ML
     Route: 058
     Dates: start: 20240220

REACTIONS (14)
  - Loss of consciousness [Unknown]
  - Syncope [Unknown]
  - Lower respiratory tract infection [Unknown]
  - Pain [Unknown]
  - Dizziness [Unknown]
  - Joint swelling [Unknown]
  - Hyperhidrosis [Unknown]
  - Malaise [Unknown]
  - Headache [Unknown]
  - Vomiting [Unknown]
  - Viral infection [Unknown]
  - Cough [Unknown]
  - Nasopharyngitis [Unknown]
  - Infection [Unknown]
